FAERS Safety Report 14656233 (Version 4)
Quarter: 2018Q2

REPORT INFORMATION
  Report Type: Report from Study
  Country: CO (occurrence: CO)
  Receive Date: 20180319
  Receipt Date: 20180410
  Transmission Date: 20180711
  Serious: Yes (Life-Threatening, Hospitalization)
  Sender: FDA-Public Use
  Company Number: CO-JNJFOC-20180308828

PATIENT
  Age: 63 Year
  Sex: Male
  Weight: 67 kg

DRUGS (2)
  1. DARZALEX [Suspect]
     Active Substance: DARATUMUMAB
     Indication: PLASMA CELL MYELOMA
     Route: 042
     Dates: start: 20171128
  2. DARZALEX [Suspect]
     Active Substance: DARATUMUMAB
     Indication: PLASMA CELL MYELOMA
     Route: 042
     Dates: start: 20170912, end: 20171114

REACTIONS (12)
  - Pneumonia [Unknown]
  - Emphysema [Unknown]
  - Endotracheal intubation [Unknown]
  - Anaemia [Unknown]
  - Atelectasis [Unknown]
  - Transplant failure [Unknown]
  - Asthenia [Recovering/Resolving]
  - Diarrhoea [Unknown]
  - Influenza like illness [Unknown]
  - Thrombocytopenia [Unknown]
  - Deafness [Recovering/Resolving]
  - Oxygen saturation abnormal [Unknown]

NARRATIVE: CASE EVENT DATE: 201802
